FAERS Safety Report 22215328 (Version 1)
Quarter: 2023Q2

REPORT INFORMATION
  Report Type: Spontaneous
  Country: US (occurrence: US)
  Receive Date: 20230415
  Receipt Date: 20230415
  Transmission Date: 20230722
  Serious: No
  Sender: FDA-Public Use
  Company Number: US-JNJFOC-20190621193

PATIENT
  Sex: Male

DRUGS (1)
  1. MOTRIN IB [Suspect]
     Active Substance: IBUPROFEN
     Indication: Myalgia
     Dosage: PATIENT ALWAYS TOOK 2 AND HAVE EVEN TAKEN 3 AT A TIME ONCE OR TWICE
     Route: 048

REACTIONS (1)
  - Incorrect dose administered [Unknown]
